FAERS Safety Report 24956258 (Version 2)
Quarter: 2025Q1

REPORT INFORMATION
  Report Type: Report from Study
  Country: GB (occurrence: GB)
  Receive Date: 20250211
  Receipt Date: 20250217
  Transmission Date: 20250409
  Serious: Yes (Hospitalization, Congenital Anomaly)
  Sender: ABBVIE
  Company Number: GB-ABBVIE-6126112

PATIENT
  Weight: 3.88 kg

DRUGS (1)
  1. HUMIRA [Suspect]
     Active Substance: ADALIMUMAB
     Indication: Exposure via body fluid
     Route: 050

REACTIONS (3)
  - Tethered oral tissue [Unknown]
  - Paternal exposure during pregnancy [Unknown]
  - Foetal exposure during pregnancy [Unknown]
